FAERS Safety Report 17484103 (Version 1)
Quarter: 2020Q1

REPORT INFORMATION
  Report Type: Spontaneous
  Country: US (occurrence: US)
  Receive Date: 20200302
  Receipt Date: 20200302
  Transmission Date: 20200409
  Serious: No
  Sender: FDA-Public Use
  Company Number: US-EMD SERONO-E2B_90075180

PATIENT
  Sex: Male

DRUGS (2)
  1. MAVENCLAD [Suspect]
     Active Substance: CLADRIBINE
     Indication: MULTIPLE SCLEROSIS
     Dosage: FIRST CYCLE OF THERAPY: 2 TABLETS ON DAYS 1 TO 3 AND 1 TABLET ON DAYS 4 TO 5.
     Route: 048
     Dates: start: 20200118
  2. MAVENCLAD [Suspect]
     Active Substance: CLADRIBINE
     Dosage: SECOND CYCLE OF THERAPY: PATIENT HAD YET TAKEN ONLY THE FIRST DOSE OF 20 MG.
     Route: 048
     Dates: start: 20200209

REACTIONS (1)
  - Product administration error [Unknown]

NARRATIVE: CASE EVENT DATE: 20200209
